FAERS Safety Report 19828790 (Version 1)
Quarter: 2021Q3

REPORT INFORMATION
  Report Type: Spontaneous
  Country: PR (occurrence: PR)
  Receive Date: 20210914
  Receipt Date: 20210914
  Transmission Date: 20211014
  Serious: No
  Sender: FDA-Public Use
  Company Number: PR-ABBVIE-21K-131-3841883-00

PATIENT
  Age: 60 Year
  Sex: Male

DRUGS (2)
  1. RINVOQ [Suspect]
     Active Substance: UPADACITINIB
     Indication: SKIN PLAQUE
  2. RINVOQ [Suspect]
     Active Substance: UPADACITINIB
     Indication: SKIN PLAQUE
     Route: 048

REACTIONS (1)
  - Off label use [Unknown]
